FAERS Safety Report 25310461 (Version 2)
Quarter: 2025Q2

REPORT INFORMATION
  Report Type: Spontaneous
  Country: IT (occurrence: IT)
  Receive Date: 20250514
  Receipt Date: 20250523
  Transmission Date: 20250716
  Serious: Yes (Hospitalization, Other)
  Sender: Unknown Manufacturer
  Company Number: None

PATIENT

DRUGS (1)
  1. ORITAVANCIN [Suspect]
     Active Substance: ORITAVANCIN
     Indication: Soft tissue infection
     Route: 042
     Dates: start: 20250411, end: 20250411

REACTIONS (3)
  - Hypertensive crisis [Unknown]
  - Dyspnoea [Unknown]
  - Tremor [Unknown]

NARRATIVE: CASE EVENT DATE: 20250411
